FAERS Safety Report 9341603 (Version 1)
Quarter: 2013Q2

REPORT INFORMATION
  Report Type: Spontaneous
  Country: US (occurrence: US)
  Receive Date: 20130611
  Receipt Date: 20130611
  Transmission Date: 20140414
  Serious: No
  Sender: FDA-Public Use
  Company Number: US-PFIZER INC-2013174469

PATIENT
  Age: 49 Year
  Sex: Male
  Weight: 93.88 kg

DRUGS (5)
  1. RAMIPRIL [Suspect]
     Indication: HEADACHE
     Dosage: 2.5 MG, 1X/DAY
     Route: 065
     Dates: start: 2013
  2. TOPROL [Concomitant]
     Dosage: UNK
     Route: 065
  3. PLAVIX [Concomitant]
     Dosage: UNK
     Route: 065
  4. ZETIA [Concomitant]
     Dosage: UNK
     Route: 065
  5. LIPITOR [Concomitant]
     Dosage: UNK
     Route: 065

REACTIONS (2)
  - Feeling abnormal [Recovered/Resolved]
  - Off label use [Unknown]
